FAERS Safety Report 10029631 (Version 1)
Quarter: 2014Q1

REPORT INFORMATION
  Report Type: Spontaneous
  Country: US (occurrence: None)
  Receive Date: 20140320
  Receipt Date: 20140320
  Transmission Date: 20141002
  Serious: Yes (Other)
  Sender: FDA-Public Use
  Company Number: None

PATIENT
  Sex: Female

DRUGS (2)
  1. SUFENTA [Suspect]
     Indication: EPIDURAL ANALGESIA
     Dates: start: 20140318, end: 20140319
  2. NAROPIN [Suspect]
     Indication: EPIDURAL ANALGESIA
     Dates: start: 20140318, end: 20140319

REACTIONS (2)
  - Drug ineffective [None]
  - Product quality issue [None]
